FAERS Safety Report 22090653 (Version 2)
Quarter: 2023Q2

REPORT INFORMATION
  Report Type: Spontaneous
  Country: DE (occurrence: DE)
  Receive Date: 20230313
  Receipt Date: 20230411
  Transmission Date: 20230721
  Serious: Yes (Other)
  Sender: FDA-Public Use
  Company Number: DE-BAYER-2023A022667

PATIENT
  Sex: Male

DRUGS (5)
  1. XARELTO [Suspect]
     Active Substance: RIVAROXABAN
     Indication: Atrial fibrillation
     Dosage: 20 MG, QD
     Route: 048
  2. XARELTO [Suspect]
     Active Substance: RIVAROXABAN
     Indication: Myocardial infarction
     Route: 048
  3. CANDESARTAN [Concomitant]
     Active Substance: CANDESARTAN
  4. ATORVASTATIN [Concomitant]
     Active Substance: ATORVASTATIN
  5. NEBIVOLOL [Concomitant]
     Active Substance: NEBIVOLOL

REACTIONS (6)
  - Neurotoxicity [Recovered/Resolved]
  - Pain in extremity [Recovered/Resolved]
  - Gait disturbance [Recovered/Resolved]
  - Cognitive disorder [Recovered/Resolved]
  - Memory impairment [Recovered/Resolved]
  - Dizziness exertional [Recovered/Resolved]

NARRATIVE: CASE EVENT DATE: 20220101
